FAERS Safety Report 5108076-3 (Version None)
Quarter: 2006Q3

REPORT INFORMATION
  Report Type: 
  Country: None (occurrence: None)
  Receive Date: 20060919
  Receipt Date: 20030810
  Transmission Date: 20061208
  Serious: Yes (Hospitalization)
  Sender: FDA-Public Use
  Company Number: US-ROCHE-344460

PATIENT
  Age: 56 Year
  Sex: Male
  Weight: 72.6 kg

DRUGS (5)
  1. FUZEON [Suspect]
     Indication: HIV INFECTION
     Dosage: ROUTE ALSO REPORTED AS INJ
     Route: 058
     Dates: start: 20030515
  2. ATAZANAVIR [Concomitant]
  3. VIREAD [Concomitant]
  4. VIDEX [Concomitant]
  5. COMBIVIR [Concomitant]

REACTIONS (7)
  - ARTHROPOD BITE [None]
  - BLOOD HIV RNA INCREASED [None]
  - DRUG DOSE OMISSION [None]
  - INJECTION SITE REACTION [None]
  - MEDICATION ERROR [None]
  - NAUSEA [None]
  - PNEUMONIA [None]
